FAERS Safety Report 4851511-6 (Version None)
Quarter: 2005Q4

REPORT INFORMATION
  Report Type: 
  Country: None (occurrence: None)
  Receive Date: 20051212
  Receipt Date: 20040910
  Transmission Date: 20060501
  Serious: Yes (Hospitalization)
  Sender: FDA-Public Use
  Company Number: AU-ROCHE-380342

PATIENT
  Age: 51 Year
  Sex: Female
  Weight: 58 kg

DRUGS (2)
  1. ROACCUTANE [Suspect]
     Indication: ACNE VARIOLIFORMIS
     Route: 048
     Dates: start: 20030626, end: 20030929
  2. KLIOVANCE [Concomitant]

REACTIONS (4)
  - DYSPNOEA [None]
  - LETHARGY [None]
  - NEUTROPENIA [None]
  - PYREXIA [None]
